FAERS Safety Report 8505753-9 (Version None)
Quarter: 2012Q3

REPORT INFORMATION
  Report Type: 
  Country: None (occurrence: None)
  Receive Date: 20120712
  Receipt Date: 20120706
  Transmission Date: 20120928
  Serious: Yes (Hospitalization)
  Sender: FDA-Public Use
  Company Number: US-BAYER-2012-014700

PATIENT
  Age: 45 Year
  Sex: Female
  Weight: 90.703 kg

DRUGS (9)
  1. KEFLEX [Concomitant]
     Dosage: 500 MG, UNK
  2. SINGULAIR [Concomitant]
     Dosage: UNK UNK, PRN
  3. PROTONIX [Concomitant]
     Indication: GASTROOESOPHAGEAL REFLUX DISEASE
     Dosage: 40 MG, ONE DAILY
     Dates: start: 20070101
  4. ALLEGRA [Concomitant]
     Dosage: UNK
  5. REGLAN [Concomitant]
     Dosage: UNK UNK, PRN
  6. XANAX [Concomitant]
     Dosage: UNK
  7. IBUPROFEN [Concomitant]
     Dosage: 800 MG, UNK
  8. YAZ [Suspect]
     Indication: VAGINAL HAEMORRHAGE
     Dosage: UNK
     Dates: start: 20080520, end: 20090106
  9. MOTRIN [Concomitant]
     Dosage: 800 ; TID

REACTIONS (2)
  - THROMBOPHLEBITIS SUPERFICIAL [None]
  - PAIN [None]
